FAERS Safety Report 13737952 (Version 5)
Quarter: 2019Q3

REPORT INFORMATION
  Report Type: Spontaneous
  Country: US (occurrence: US)
  Receive Date: 20170710
  Receipt Date: 20190821
  Transmission Date: 20191004
  Serious: Yes (Hospitalization, Other)
  Sender: FDA-Public Use
  Company Number: US-PFIZER INC-2017294917

PATIENT
  Age: 83 Year
  Sex: Female

DRUGS (9)
  1. ATENOL [Concomitant]
     Active Substance: ATENOLOL
     Dosage: 50 MG, 2X/DAY
  2. TIKOSYN [Suspect]
     Active Substance: DOFETILIDE
     Indication: HEART RATE
     Dosage: 0.125 MG, 2X/DAY
  3. TIKOSYN [Suspect]
     Active Substance: DOFETILIDE
     Indication: BLOOD PRESSURE MEASUREMENT
  4. AMLODIPINE BESYLATE. [Concomitant]
     Active Substance: AMLODIPINE BESYLATE
     Dosage: 10 MG, 1X/DAY
  5. LIPITOR [Concomitant]
     Active Substance: ATORVASTATIN CALCIUM
     Dosage: UNK
  6. WARFARIN SODIUM. [Concomitant]
     Active Substance: WARFARIN SODIUM
     Dosage: 5 MG, 2X/WEEK (1TIME AT NIGHT, 2 TIMES A WEEK)
  7. WARFARIN SODIUM. [Concomitant]
     Active Substance: WARFARIN SODIUM
     Dosage: 2 MG, (1 TIME AT NIGHT; 4 TIMES A WEEK)
  8. ATORVASTATIN [Concomitant]
     Active Substance: ATORVASTATIN
     Dosage: 20 MG, 1X/DAY
  9. PROTONIX [OMEPRAZOLE] [Concomitant]
     Active Substance: OMEPRAZOLE
     Dosage: UNK

REACTIONS (10)
  - Skin burning sensation [Unknown]
  - Pain [Unknown]
  - Dysphonia [Unknown]
  - Dyspnoea [Unknown]
  - Heart rate increased [Recovered/Resolved]
  - Spinal stenosis [Unknown]
  - Fatigue [Unknown]
  - Hypertension [Recovered/Resolved]
  - Stress [Unknown]
  - Irritability [Unknown]
